FAERS Safety Report 7827275-0 (Version None)
Quarter: 2011Q4

REPORT INFORMATION
  Report Type: 
  Country: None (occurrence: None)
  Receive Date: 20111018
  Receipt Date: 20111004
  Transmission Date: 20120403
  Serious: Yes (Hospitalization)
  Sender: FDA-Public Use
  Company Number: 2011P1008532

PATIENT
  Age: 71 Year
  Sex: Female

DRUGS (6)
  1. TAZOBACTAM [Concomitant]
  2. ALBENDAZOLE (NO PREF. NAME) [Suspect]
     Dosage: 800 MG; QD; PO; PO
     Route: 048
     Dates: start: 20110626, end: 20110719
  3. ALBENDAZOLE (NO PREF. NAME) [Suspect]
     Dosage: 800 MG; QD; PO; PO
     Route: 048
     Dates: start: 20110101
  4. CIPROFLAXACIN [Concomitant]
  5. PARACETAMOL (NO PREF. NAME) [Suspect]
     Dosage: 2 GM; ;PO
     Route: 048
     Dates: start: 20110715, end: 20110718
  6. PIPERACILLIN PLUS [Concomitant]

REACTIONS (5)
  - NAUSEA [None]
  - VOMITING [None]
  - TRANSAMINASES INCREASED [None]
  - HYPERPYREXIA [None]
  - DECREASED APPETITE [None]
